FAERS Safety Report 4315764-5 (Version None)
Quarter: 2004Q1

REPORT INFORMATION
  Report Type: 
  Country: None (occurrence: None)
  Receive Date: 20040309
  Receipt Date: 20040220
  Transmission Date: 20041129
  Serious: Yes (Death, Hospitalization)
  Sender: FDA-Public Use
  Company Number: 180346

PATIENT
  Age: 34 Year
  Sex: Male

DRUGS (4)
  1. AVONEX [Suspect]
     Indication: MULTIPLE SCLEROSIS
  2. MORPHINE SULFATE [Concomitant]
  3. TYLENOL (CAPLET) [Concomitant]
  4. SOLU-MEDROL [Concomitant]

REACTIONS (1)
  - PROGRESSIVE MULTIPLE SCLEROSIS [None]
